FAERS Safety Report 10218686 (Version 1)
Quarter: 2014Q2

REPORT INFORMATION
  Report Type: Spontaneous
  Country: US (occurrence: US)
  Receive Date: 20140605
  Receipt Date: 20140605
  Transmission Date: 20141212
  Serious: No
  Sender: FDA-Public Use
  Company Number: US-PFIZER INC-2014153818

PATIENT
  Age: 64 Year
  Sex: Female

DRUGS (2)
  1. CELEBREX [Suspect]
     Dosage: UNK, 2X/ DAY
  2. CELEBREX [Suspect]
     Dosage: UNK, 1X/DAY

REACTIONS (5)
  - Incorrect dose administered [Unknown]
  - Intentional product misuse [Unknown]
  - Erythema [Unknown]
  - Joint swelling [Unknown]
  - Activities of daily living impaired [Unknown]
